FAERS Safety Report 15660048 (Version 1)
Quarter: 2018Q4

REPORT INFORMATION
  Report Type: Spontaneous
  Country: US (occurrence: US)
  Receive Date: 20181115
  Receipt Date: 20181115
  Transmission Date: 20190205
  Serious: No
  Sender: FDA-Public Use
  Company Number: None

PATIENT
  Age: 57 Year
  Sex: Male
  Weight: 81.65 kg

DRUGS (1)
  1. CIMZIA [Suspect]
     Active Substance: CERTOLIZUMAB PEGOL
     Indication: ANKYLOSING SPONDYLITIS
     Dosage: INJECT 200MG(1 SYRINGE) SUBCUTANEOUSLY EVERY 2 WEEKS AS DIRECTED
     Route: 058
     Dates: start: 201803

REACTIONS (2)
  - Muscle spasms [None]
  - Arthropathy [None]
